FAERS Safety Report 7450628-X (Version None)
Quarter: 2011Q2

REPORT INFORMATION
  Report Type: 
  Country: None (occurrence: None)
  Receive Date: 20110502
  Receipt Date: 20091030
  Transmission Date: 20111010
  Serious: Yes (Hospitalization, Other)
  Sender: FDA-Public Use
  Company Number: US-BAYER-200937675NA

PATIENT
  Age: 57 Year
  Sex: Male
  Weight: 97.506 kg

DRUGS (16)
  1. AMIODARONE [Concomitant]
     Dosage: UNK
     Dates: start: 20060101
  2. INSULIN [INSULIN] [Concomitant]
     Dosage: UNK
     Dates: start: 20060109
  3. DOPAMINE HCL [Concomitant]
     Dosage: UNK
     Dates: start: 20060109
  4. HEPARIN [Concomitant]
     Dosage: 10000 THEN DRIP @ 1100 UNITS/HR
     Dates: start: 20060109
  5. TRASYLOL [Suspect]
     Indication: CORONARY ARTERY BYPASS
  6. ASPIRIN [Concomitant]
     Dosage: UNK
     Dates: start: 20000101
  7. ALBUMIN NOS [Concomitant]
     Dosage: UNK
     Dates: start: 20060109
  8. PROTAMINE SULFATE [Concomitant]
     Dosage: UNK
     Dates: start: 20060109
  9. ATACAND [Concomitant]
     Dosage: UNK
     Dates: start: 20000101
  10. TOPROL-XL [Concomitant]
     Dosage: 25 MG, QD
     Route: 048
     Dates: start: 20040602
  11. LIPITOR [Concomitant]
     Dosage: 40 MG, QD
     Route: 048
  12. MANNITOL [Concomitant]
     Dosage: UNK
     Dates: start: 20060109
  13. NITROGLYCERIN [Concomitant]
     Dosage: UNK
     Route: 062
     Dates: start: 20060101
  14. METOPROLOL SUCCINATE [Concomitant]
     Dosage: UNK
     Dates: start: 20060101
  15. TRASYLOL [Suspect]
     Indication: AORTIC ANEURYSM
     Dosage: LOADING DOSE: 200ML THEN 50ML/HR - CONTINUED
     Dates: start: 20060109
  16. TRASYLOL [Suspect]
     Indication: AORTIC VALVE REPLACEMENT

REACTIONS (8)
  - CEREBROVASCULAR ACCIDENT [None]
  - STRESS [None]
  - PAIN [None]
  - EMOTIONAL DISTRESS [None]
  - UNEVALUABLE EVENT [None]
  - ANXIETY [None]
  - FEAR [None]
  - INJURY [None]
